FAERS Safety Report 23588406 (Version 1)
Quarter: 2024Q1

REPORT INFORMATION
  Report Type: Spontaneous
  Country: US (occurrence: US)
  Receive Date: 20240302
  Receipt Date: 20240302
  Transmission Date: 20240409
  Serious: Yes (Other)
  Sender: FDA-Public Use
  Company Number: US-AUROBINDO-AUR-APL-2024-009035

PATIENT
  Age: 20 Year
  Sex: Female

DRUGS (20)
  1. DEXMEDETOMIDINE [Suspect]
     Active Substance: DEXMEDETOMIDINE
     Indication: Behaviour disorder
     Dosage: UNK
     Route: 065
  2. DEXMEDETOMIDINE [Suspect]
     Active Substance: DEXMEDETOMIDINE
     Indication: Psychomotor hyperactivity
  3. DEXMEDETOMIDINE [Suspect]
     Active Substance: DEXMEDETOMIDINE
     Indication: Hyperkinesia
  4. DEXMEDETOMIDINE [Suspect]
     Active Substance: DEXMEDETOMIDINE
     Indication: Muscle spasms
  5. DEXMEDETOMIDINE [Suspect]
     Active Substance: DEXMEDETOMIDINE
     Indication: Encephalitis autoimmune
  6. DIAZEPAM [Suspect]
     Active Substance: DIAZEPAM
     Indication: Behaviour disorder
     Dosage: UNK
     Route: 065
  7. DIAZEPAM [Suspect]
     Active Substance: DIAZEPAM
     Indication: Psychomotor hyperactivity
  8. DIAZEPAM [Suspect]
     Active Substance: DIAZEPAM
     Indication: Hyperkinesia
  9. DIAZEPAM [Suspect]
     Active Substance: DIAZEPAM
     Indication: Muscle spasms
  10. DIAZEPAM [Suspect]
     Active Substance: DIAZEPAM
     Indication: Encephalitis autoimmune
  11. RISPERIDONE [Suspect]
     Active Substance: RISPERIDONE
     Indication: Behaviour disorder
     Dosage: UNK
     Route: 065
  12. RISPERIDONE [Suspect]
     Active Substance: RISPERIDONE
     Indication: Psychomotor hyperactivity
  13. RISPERIDONE [Suspect]
     Active Substance: RISPERIDONE
     Indication: Hyperkinesia
  14. RISPERIDONE [Suspect]
     Active Substance: RISPERIDONE
     Indication: Muscle spasms
  15. RISPERIDONE [Suspect]
     Active Substance: RISPERIDONE
     Indication: Encephalitis autoimmune
  16. MIDAZOLAM [Suspect]
     Active Substance: MIDAZOLAM
     Indication: Behaviour disorder
     Dosage: UNK
     Route: 065
  17. MIDAZOLAM [Suspect]
     Active Substance: MIDAZOLAM
     Indication: Psychomotor hyperactivity
  18. MIDAZOLAM [Suspect]
     Active Substance: MIDAZOLAM
     Indication: Hyperkinesia
  19. MIDAZOLAM [Suspect]
     Active Substance: MIDAZOLAM
     Indication: Muscle spasms
  20. MIDAZOLAM [Suspect]
     Active Substance: MIDAZOLAM
     Indication: Encephalitis autoimmune

REACTIONS (1)
  - Drug ineffective [Unknown]
